FAERS Safety Report 15318368 (Version 1)
Quarter: 2018Q3

REPORT INFORMATION
  Report Type: Spontaneous
  Country: US (occurrence: US)
  Receive Date: 20180817
  Receipt Date: 20180817
  Transmission Date: 20181010
  Serious: Yes (Disabling)
  Sender: FDA-Public Use
  Company Number: None

PATIENT
  Age: 22 Year
  Sex: Female
  Weight: 65 kg

DRUGS (2)
  1. MIRTAZAPIN [Concomitant]
     Active Substance: MIRTAZAPINE
  2. NUVARING [Suspect]
     Active Substance: ETHINYL ESTRADIOL\ETONOGESTREL
     Dates: start: 20180101, end: 20180727

REACTIONS (5)
  - Insomnia [None]
  - Libido decreased [None]
  - Anhedonia [None]
  - Mental disorder [None]
  - Generalised anxiety disorder [None]

NARRATIVE: CASE EVENT DATE: 20180501
